FAERS Safety Report 5034536-X (Version None)
Quarter: 2006Q2

REPORT INFORMATION
  Report Type: 
  Country: None (occurrence: None)
  Receive Date: 20060626
  Receipt Date: 20060502
  Transmission Date: 20061013
  Serious: Yes (Hospitalization)
  Sender: FDA-Public Use
  Company Number: FR-NOVOPROD-253001

PATIENT
  Age: 80 Year
  Sex: Female
  Weight: 66 kg

DRUGS (6)
  1. NOVONORM [Suspect]
     Indication: DRUG USE FOR UNKNOWN INDICATION
     Dosage: 1.5 MG, QD
     Route: 048
  2. FUCIDINE                           /00065701/ [Concomitant]
     Dosage: 1 G, QD
     Route: 048
     Dates: start: 20060309
  3. ZOCOR [Concomitant]
     Dosage: 20 MG, QD
     Route: 048
  4. ALDACTAZIDE [Concomitant]
     Dosage: 40 MG, QD
     Route: 048
  5. EUPRESSYL [Concomitant]
     Dosage: 1.2 G, QD
     Route: 048
  6. APROVEL [Concomitant]
     Dosage: 150 MG, QD
     Route: 048

REACTIONS (2)
  - HYPOGLYCAEMIA [None]
  - HYPOGLYCAEMIC COMA [None]
